FAERS Safety Report 9125131 (Version 2)
Quarter: 2013Q1

REPORT INFORMATION
  Report Type: Spontaneous
  Country: US (occurrence: US)
  Receive Date: 20130227
  Receipt Date: 20130304
  Transmission Date: 20140127
  Serious: Yes (Other)
  Sender: FDA-Public Use
  Company Number: US-BAYER-2013-025148

PATIENT
  Age: 60 Year
  Sex: Male
  Weight: 72.56 kg

DRUGS (5)
  1. ALKA-SELTZER PLUS DAY SEVERE COLD, COUGH AND FLU [Suspect]
     Indication: NASOPHARYNGITIS
     Dosage: 2 DF, ONCE
     Dates: start: 20130221, end: 20130221
  2. VITAMINS NOS [Concomitant]
  3. LISINOPRIL [Concomitant]
  4. ANTIINFLAMMATORY/ANTIRHEUMATIC PRODUCTS [Concomitant]
  5. GARLIC PILLS [Concomitant]

REACTIONS (3)
  - Lip swelling [Recovered/Resolved]
  - Speech disorder [Recovered/Resolved]
  - Paraesthesia oral [None]
